FAERS Safety Report 10309427 (Version 2)
Quarter: 2014Q3

REPORT INFORMATION
  Report Type: Report from Study
  Country: KR (occurrence: KR)
  Receive Date: 20140716
  Receipt Date: 20140722
  Transmission Date: 20150326
  Serious: Yes (Hospitalization)
  Sender: FDA-Public Use
  Company Number: KR-009507513-1407KOR005884

PATIENT
  Age: 57 Year
  Sex: Male
  Weight: 59.5 kg

DRUGS (3)
  1. CISPLATIN. [Suspect]
     Active Substance: CISPLATIN
     Indication: GASTRIC CANCER
     Dosage: STRENGTH 60MG/M2, QD TOTAL DIALY DOSE 102MG
     Route: 042
     Dates: start: 20140620, end: 20140620
  2. CAPECITABINE [Suspect]
     Active Substance: CAPECITABINE
     Indication: GASTRIC CANCER
     Dosage: STRENGTH 1000MG/M2, BID, TOTAL DAILY DOSE 3500MG
     Route: 048
     Dates: start: 20140620, end: 20140704
  3. VORINOSTAT [Suspect]
     Active Substance: VORINOSTAT
     Indication: GASTRIC CANCER
     Dosage: 400MG QD
     Route: 048
     Dates: start: 20140620, end: 20140701

REACTIONS (1)
  - Embolism arterial [Recovered/Resolved]

NARRATIVE: CASE EVENT DATE: 20140710
